FAERS Safety Report 6694844-3 (Version None)
Quarter: 2010Q2

REPORT INFORMATION
  Report Type: 
  Country: None (occurrence: None)
  Receive Date: 20100423
  Receipt Date: 20100408
  Transmission Date: 20101027
  Serious: Yes (Death, Hospitalization)
  Sender: FDA-Public Use
  Company Number: ES-JNJFOC-20100402724

PATIENT
  Age: 72 Year
  Sex: Male

DRUGS (12)
  1. REMICADE [Suspect]
     Indication: PSORIATIC ARTHROPATHY
     Dosage: MAINTENANCE THERAPY FOR 2 YEARS
     Route: 042
  2. REMICADE [Suspect]
     Route: 042
  3. REMICADE [Suspect]
     Dosage: AT WEEKS 0, 2, AND 6
     Route: 042
  4. REMICADE [Suspect]
     Indication: PUSTULAR PSORIASIS
     Route: 042
  5. REMICADE [Suspect]
     Dosage: AT WEEKS 0, 2, AND 6
     Route: 042
  6. REMICADE [Suspect]
     Dosage: MAINTENANCE THERAPY FOR 2 YEARS
     Route: 042
  7. METHOTREXATE [Concomitant]
     Route: 048
  8. RANITIDINE [Concomitant]
     Indication: PREMEDICATION
  9. HYDROXYZINE [Concomitant]
     Indication: PREMEDICATION
  10. PREDNISONE [Concomitant]
     Indication: PREMEDICATION
  11. PARACETAMOL [Concomitant]
     Indication: PREMEDICATION
  12. INSULIN [Concomitant]
     Indication: BLOOD GLUCOSE ABNORMAL

REACTIONS (2)
  - LARYNGEAL CANCER [None]
  - MYOCARDIAL ISCHAEMIA [None]
